FAERS Safety Report 23787889 (Version 1)
Quarter: 2024Q2

REPORT INFORMATION
  Report Type: Spontaneous
  Country: US (occurrence: US)
  Receive Date: 20240426
  Receipt Date: 20240426
  Transmission Date: 20240716
  Serious: No
  Sender: FDA-Public Use
  Company Number: US-JNJFOC-20240456664

PATIENT

DRUGS (2)
  1. CONCERTA [Suspect]
     Active Substance: METHYLPHENIDATE HYDROCHLORIDE
     Indication: Attention deficit hyperactivity disorder
     Route: 048
  2. RITALIN [Concomitant]
     Active Substance: METHYLPHENIDATE HYDROCHLORIDE
     Dosage: 1 RITALIN IN THE MORNING BECAUSE THEY READ YOU? CAN TAKE IT 3 TIMES PER DAY

REACTIONS (4)
  - Product availability issue [Unknown]
  - Product dose omission issue [Unknown]
  - Thinking abnormal [Unknown]
  - Anxiety [Unknown]
